FAERS Safety Report 8443689-2 (Version None)
Quarter: 2012Q2

REPORT INFORMATION
  Report Type: 
  Country: None (occurrence: None)
  Receive Date: 20120606
  Receipt Date: 20120523
  Transmission Date: 20120825
  Serious: Yes (Other)
  Sender: FDA-Public Use
  Company Number: DSA_55791_2012

PATIENT
  Sex: Male

DRUGS (2)
  1. XENAZINA (ZENAZINA-TETRABENAZINE) 25 MG [Suspect]
     Indication: BLEPHAROSPASM
     Dosage: 100 MG, QD, ORAL
     Route: 048
     Dates: start: 20120215, end: 20120314
  2. RAMIPRIL [Concomitant]

REACTIONS (3)
  - MUSCLE RIGIDITY [None]
  - TREMOR [None]
  - HYPERHIDROSIS [None]
